FAERS Safety Report 13552128 (Version 2)
Quarter: 2017Q2

REPORT INFORMATION
  Report Type: Spontaneous
  Country: CN (occurrence: CN)
  Receive Date: 20170516
  Receipt Date: 20170605
  Transmission Date: 20170830
  Serious: Yes (Hospitalization)
  Sender: FDA-Public Use
  Company Number: CN-009507513-1705CHN005938

PATIENT
  Age: 54 Year
  Sex: Male
  Weight: 65 kg

DRUGS (1)
  1. IMIPENEM AND CILASTATIN [Suspect]
     Active Substance: CILASTATIN SODIUM\IMIPENEM
     Indication: SEPSIS
     Dosage: 2 G, TID
     Route: 041
     Dates: start: 20170321, end: 20170323

REACTIONS (3)
  - Mental disorder [Recovering/Resolving]
  - Tic [Recovering/Resolving]
  - Encopresis [Recovering/Resolving]

NARRATIVE: CASE EVENT DATE: 20170323
